FAERS Safety Report 9950800 (Version 1)
Quarter: 2014Q1

REPORT INFORMATION
  Report Type: Spontaneous
  Country: DE (occurrence: DE)
  Receive Date: 20140304
  Receipt Date: 20140304
  Transmission Date: 20141002
  Serious: Yes (Life-Threatening, Hospitalization, Other)
  Sender: FDA-Public Use
  Company Number: DE-PFIZER INC-2014056233

PATIENT
  Age: 54 Year
  Sex: Female
  Weight: 90 kg

DRUGS (3)
  1. DOXYCYCLINE HYCLATE [Suspect]
     Indication: ATYPICAL PNEUMONIA
     Dosage: 200 MG, 1X/DAY
  2. CEFUROXIME [Suspect]
     Indication: ATYPICAL PNEUMONIA
     Dosage: 1 DF, 2X/DAY
  3. CAPRELSA [Suspect]
     Indication: THYROID CANCER
     Dosage: 300 MG, 1X/DAY

REACTIONS (3)
  - Pancreatitis [Recovered/Resolved]
  - Renal failure acute [Recovered/Resolved]
  - Atypical pneumonia [Recovered/Resolved]
